FAERS Safety Report 5923012-5 (Version None)
Quarter: 2008Q4

REPORT INFORMATION
  Report Type: 
  Country: None (occurrence: None)
  Receive Date: 20081018
  Receipt Date: 20081007
  Transmission Date: 20090506
  Serious: Yes (Hospitalization, Other)
  Sender: FDA-Public Use
  Company Number: US-PFIZER INC-2008067447

PATIENT
  Sex: Female

DRUGS (5)
  1. NEURONTIN [Suspect]
  2. LYRICA [Suspect]
  3. POLYGAM [Suspect]
  4. PANGLOBULIN [Suspect]
  5. ALL OTHER THERAPEUTIC PRODUCTS [Suspect]

REACTIONS (3)
  - CARDIOVASCULAR DISORDER [None]
  - DELUSION [None]
  - OBSTRUCTIVE AIRWAYS DISORDER [None]
